FAERS Safety Report 10165797 (Version 2)
Quarter: 2014Q2

REPORT INFORMATION
  Report Type: Spontaneous
  Country: US (occurrence: US)
  Receive Date: 20140510
  Receipt Date: 20140510
  Transmission Date: 20141212
  Serious: No
  Sender: FDA-Public Use
  Company Number: US-BRISTOL-MYERS SQUIBB COMPANY-19937648

PATIENT
  Age: 47 Year
  Sex: Female
  Weight: 81.63 kg

DRUGS (5)
  1. BYDUREON [Suspect]
     Indication: TYPE 2 DIABETES MELLITUS
     Dosage: 8 INJECTION ON 20DEC13
     Route: 058
     Dates: start: 20131108
  2. ADVAIR [Concomitant]
  3. SINGULAIR [Concomitant]
  4. CYMBALTA [Concomitant]
  5. JANUMET [Concomitant]
     Dosage: XL

REACTIONS (6)
  - Injection site nodule [Not Recovered/Not Resolved]
  - Injection site pruritus [Unknown]
  - Abdominal pain [Recovering/Resolving]
  - Decreased appetite [Unknown]
  - Diarrhoea [Unknown]
  - Abdominal distension [Unknown]
